FAERS Safety Report 4360643-0 (Version None)
Quarter: 2004Q2

REPORT INFORMATION
  Report Type: 
  Country: None (occurrence: None)
  Receive Date: 20040519
  Receipt Date: 20040519
  Transmission Date: 20050107
  Serious: Yes (Other)
  Sender: FDA-Public Use
  Company Number: None

PATIENT
  Sex: Female
  Weight: 102.0593 kg

DRUGS (2)
  1. PREDNISONE [Suspect]
     Indication: PHARYNGITIS
     Dosage: 1         5 OARL
     Route: 048
     Dates: start: 20020520, end: 20020625
  2. METHYLPREDNISOLONE [Suspect]
     Indication: NEURALGIA
     Dosage: 3,2,1          9 ORAL
     Route: 048
     Dates: start: 20021111, end: 20021118

REACTIONS (20)
  - ABDOMINAL DISTENSION [None]
  - ABDOMINAL PAIN LOWER [None]
  - ABDOMINAL PAIN UPPER [None]
  - BACK PAIN [None]
  - BLADDER DISORDER [None]
  - CONSTIPATION [None]
  - DYSMENORRHOEA [None]
  - DYSPEPSIA [None]
  - HAEMATEMESIS [None]
  - MENORRHAGIA [None]
  - MUSCULAR WEAKNESS [None]
  - MUSCULOSKELETAL STIFFNESS [None]
  - NAUSEA [None]
  - OLIGOMENORRHOEA [None]
  - OVARIAN CYST [None]
  - PHARYNGOLARYNGEAL PAIN [None]
  - PYREXIA [None]
  - UTERINE ENLARGEMENT [None]
  - UTERINE LEIOMYOMA [None]
  - VOMITING [None]
